FAERS Safety Report 21017536 (Version 1)
Quarter: 2022Q2

REPORT INFORMATION
  Report Type: Spontaneous
  Country: US (occurrence: None)
  Receive Date: 20220627
  Receipt Date: 20220627
  Transmission Date: 20220721
  Serious: Yes (Life-Threatening)
  Sender: FDA-Public Use
  Company Number: None

PATIENT
  Age: 62 Year
  Sex: Female
  Weight: 99 kg

DRUGS (6)
  1. INGREZZA [Suspect]
     Active Substance: VALBENAZINE
     Indication: Tardive dyskinesia
     Dosage: FREQUENCY : AT BEDTIME;?
     Route: 048
     Dates: start: 20220622, end: 20220623
  2. Latuda 80mg +20mg PO QHS [Concomitant]
     Dates: start: 20201209
  3. Lexapro 10mg PO QAM [Concomitant]
     Dates: start: 20220405
  4. Trazodone 100mg PO QHS PRN insomnia [Concomitant]
     Dates: start: 20220525
  5. COGENTIN [Concomitant]
     Dates: start: 20201209, end: 20220622
  6. LORAZEPAM [Concomitant]
     Dates: start: 20210914

REACTIONS (3)
  - Swollen tongue [None]
  - Tongue biting [None]
  - Dyspnoea [None]

NARRATIVE: CASE EVENT DATE: 20220622
